FAERS Safety Report 9534969 (Version 1)
Quarter: 2013Q3

REPORT INFORMATION
  Report Type: Spontaneous
  Country: US (occurrence: US)
  Receive Date: 20130918
  Receipt Date: 20130918
  Transmission Date: 20140515
  Serious: Yes (Other)
  Sender: FDA-Public Use
  Company Number: US-TEVA-432966USA

PATIENT
  Age: 50 Year
  Sex: Male
  Weight: 87.62 kg

DRUGS (8)
  1. NUVIGIL [Suspect]
     Indication: SOMNOLENCE
     Dosage: 250 MILLIGRAM DAILY;
     Route: 048
  2. PRISTIQU [Concomitant]
     Indication: MENTAL DISORDER
  3. XANAX [Concomitant]
  4. LOSARTAN [Concomitant]
     Indication: CARDIAC DISORDER
  5. BYSTOLIC [Concomitant]
     Indication: CARDIAC DISORDER
  6. PLAVIX [Concomitant]
     Indication: ANTICOAGULANT THERAPY
  7. ASPIRIN [Concomitant]
     Indication: PROPHYLAXIS
  8. PRAVASTATIN [Concomitant]
     Indication: HYPERCHOLESTEROLAEMIA

REACTIONS (4)
  - Myocardial infarction [Recovered/Resolved]
  - Heart rate normal [Not Recovered/Not Resolved]
  - Inappropriate schedule of drug administration [Recovered/Resolved]
  - Off label use [Not Recovered/Not Resolved]
